FAERS Safety Report 4964115-1 (Version None)
Quarter: 2006Q1

REPORT INFORMATION
  Report Type: 
  Country: None (occurrence: None)
  Receive Date: 20060330
  Receipt Date: 20060318
  Transmission Date: 20060701
  Serious: Yes (Other)
  Sender: FDA-Public Use
  Company Number: US200603003542

PATIENT
  Age: 55 Year
  Sex: Female

DRUGS (2)
  1. FORTEO [Suspect]
     Indication: OSTEOPOROSIS
     Dates: start: 20051118
  2. FORTEO PEN (FORTEO  PEN)) PEN, DISPOSABLE [Concomitant]

REACTIONS (1)
  - BLOOD CALCIUM INCREASED [None]
